FAERS Safety Report 6539268-4 (Version None)
Quarter: 2010Q1

REPORT INFORMATION
  Report Type: 
  Country: None (occurrence: None)
  Receive Date: 20100115
  Receipt Date: 20100106
  Transmission Date: 20100710
  Serious: Yes (Hospitalization, Other)
  Sender: FDA-Public Use
  Company Number: US-JNJFOC-20091107323

PATIENT
  Sex: Female
  Weight: 77.11 kg

DRUGS (3)
  1. DURAGESIC-100 [Suspect]
     Indication: PAIN
     Route: 062
     Dates: start: 20020101, end: 20090101
  2. DURAGESIC-100 [Suspect]
     Indication: NECK PAIN
     Route: 062
     Dates: start: 20020101, end: 20090101
  3. DURAGESIC-100 [Suspect]
     Indication: BACK PAIN
     Route: 062
     Dates: start: 20020101, end: 20090101

REACTIONS (4)
  - BODY HEIGHT DECREASED [None]
  - CRUSH INJURY [None]
  - FALL [None]
  - WEIGHT DECREASED [None]
